FAERS Safety Report 9817949 (Version 1)
Quarter: 2013Q4

REPORT INFORMATION
  Report Type: Spontaneous
  Country: US (occurrence: None)
  Receive Date: 20131223
  Receipt Date: 20131223
  Transmission Date: 20140711
  Serious: Yes (Other)
  Sender: FDA-Public Use
  Company Number: 219753

PATIENT
  Sex: Male

DRUGS (2)
  1. PICATO GEL [Suspect]
     Indication: PRECANCEROUS SKIN LESION
     Route: 061
     Dates: start: 20121121, end: 20121123
  2. PLAVIX [Concomitant]

REACTIONS (5)
  - Eye swelling [None]
  - Application site pruritus [None]
  - Application site exfoliation [None]
  - Skin fissures [None]
  - Application site haemorrhage [None]
